FAERS Safety Report 10404392 (Version 1)
Quarter: 2014Q3

REPORT INFORMATION
  Report Type: Spontaneous
  Country: VN (occurrence: VN)
  Receive Date: 20140823
  Receipt Date: 20140823
  Transmission Date: 20150326
  Serious: Yes (Death, Other)
  Sender: FDA-Public Use
  Company Number: PHHY2014VN104529

PATIENT
  Age: 63 Year
  Sex: Female

DRUGS (6)
  1. PERFALGAN [Suspect]
     Active Substance: ACETAMINOPHEN
     Indication: PYREXIA
     Dosage: UNK UKN, UNK
     Route: 042
     Dates: start: 201401
  2. SOLUPRED [Suspect]
     Active Substance: PREDNISOLONE
     Indication: ANALGESIC THERAPY
     Dosage: UNK UKN, UNK
     Route: 042
     Dates: start: 201401
  3. SOLUPRED [Suspect]
     Active Substance: PREDNISOLONE
     Indication: INFLAMMATION
  4. PERFALGAN [Suspect]
     Active Substance: ACETAMINOPHEN
     Indication: PROPHYLAXIS
  5. ACLASTA [Suspect]
     Active Substance: ZOLEDRONIC ACID
     Indication: OSTEOPOROSIS
     Dosage: 5 MG, UNK
     Route: 042
     Dates: start: 201401
  6. SOLUPRED [Suspect]
     Active Substance: PREDNISOLONE
     Indication: PROPHYLAXIS

REACTIONS (4)
  - Cyanosis [Fatal]
  - Loss of consciousness [Fatal]
  - Pyrexia [Unknown]
  - Neoplasm malignant [Fatal]

NARRATIVE: CASE EVENT DATE: 201401
